FAERS Safety Report 5155399-8 (Version None)
Quarter: 2006Q4

REPORT INFORMATION
  Report Type: 
  Country: None (occurrence: None)
  Receive Date: 20061121
  Receipt Date: 20061109
  Transmission Date: 20070319
  Serious: Yes (Other)
  Sender: FDA-Public Use
  Company Number: JP-SANOFI-SYNTHELABO-A01200609767

PATIENT
  Sex: Female

DRUGS (3)
  1. LEUCOVORIN CALCIUM [Suspect]
     Dosage: 100 MG/M2 AS INFUSION D1-2
     Route: 042
     Dates: start: 20060811, end: 20060812
  2. FLUOROURACIL [Suspect]
     Dosage: 400 MG/M2 IN BOLUS THEN 600 MG/M2 CONTINUOUS INFUSION D1-2
     Route: 042
     Dates: start: 20060811, end: 20060812
  3. OXALIPLATIN [Suspect]
     Dosage: 85 MG/M2 AS INFUSION D1
     Route: 042
     Dates: start: 20060811, end: 20060811

REACTIONS (1)
  - DISSEMINATED INTRAVASCULAR COAGULATION [None]
